FAERS Safety Report 17774181 (Version 1)
Quarter: 2020Q2

REPORT INFORMATION
  Report Type: Spontaneous
  Country: PK (occurrence: PK)
  Receive Date: 20200513
  Receipt Date: 20200513
  Transmission Date: 20200714
  Serious: Yes (Other)
  Sender: FDA-Public Use
  Company Number: PK-SUN PHARMACEUTICAL INDUSTRIES LTD-2020RR-246203

PATIENT
  Age: 30 Year
  Sex: Male

DRUGS (1)
  1. LOPERAMIDE [Suspect]
     Active Substance: LOPERAMIDE
     Indication: DIARRHOEA
     Dosage: UNK, FOR LAST 3-4 MONTHS
     Route: 065

REACTIONS (10)
  - Ventricular tachycardia [Recovered/Resolved]
  - Pulseless electrical activity [Recovered/Resolved]
  - Self-medication [Unknown]
  - Hyperhidrosis [Unknown]
  - Haemodynamic instability [Recovered/Resolved]
  - Somnolence [Unknown]
  - Electrocardiogram QT prolonged [Recovering/Resolving]
  - Torsade de pointes [Recovered/Resolved]
  - Toxicity to various agents [Unknown]
  - Generalised tonic-clonic seizure [Unknown]
